FAERS Safety Report 5408610-X (Version None)
Quarter: 2007Q3

REPORT INFORMATION
  Report Type: 
  Country: None (occurrence: None)
  Receive Date: 20070808
  Receipt Date: 20070727
  Transmission Date: 20080115
  Serious: Yes (Other)
  Sender: FDA-Public Use
  Company Number: US-PFIZER INC-2007064105

PATIENT
  Sex: Female
  Weight: 55.3 kg

DRUGS (4)
  1. CHANTIX [Suspect]
     Indication: SMOKING CESSATION THERAPY
     Dosage: FREQ:EVERY DAY
  2. COREG [Concomitant]
  3. CLONAZEPAM [Concomitant]
  4. ALPRAZOLAM [Concomitant]

REACTIONS (2)
  - NAUSEA [None]
  - URINARY TRACT INFECTION [None]
